FAERS Safety Report 5234443-3 (Version None)
Quarter: 2007Q1

REPORT INFORMATION
  Report Type: 
  Country: None (occurrence: None)
  Receive Date: 20070209
  Receipt Date: 20070202
  Transmission Date: 20070707
  Serious: Yes (Life-Threatening, Hospitalization)
  Sender: FDA-Public Use
  Company Number: JP-GLAXOSMITHKLINE-B0318218A

PATIENT
  Sex: Male
  Weight: 3 kg

DRUGS (8)
  1. PAXIL [Suspect]
     Indication: BORDERLINE PERSONALITY DISORDER
     Dosage: 30MG PER DAY
     Dates: start: 19980101
  2. METHYLPHENIDATE HCL [Suspect]
     Indication: BORDERLINE PERSONALITY DISORDER
     Dosage: 20MG TWICE PER DAY
     Dates: start: 19980101
  3. ALPRAZOLAM [Suspect]
     Indication: BORDERLINE PERSONALITY DISORDER
     Dosage: .8MG PER DAY
     Dates: start: 19980101
  4. FLUNITRAZEPAM [Suspect]
     Indication: BORDERLINE PERSONALITY DISORDER
     Dosage: 2MG PER DAY
     Dates: start: 19980101
  5. THEO-DUR [Suspect]
     Indication: ASTHMA
     Dosage: 200MG TWICE PER DAY
  6. TAVEGYL [Suspect]
     Indication: ASTHMA
     Dosage: 1MG TWICE PER DAY
  7. MUCOSAL [Suspect]
     Indication: ASTHMA
     Dosage: 15MG PER DAY
  8. OXYTOCIN [Suspect]

REACTIONS (13)
  - AGITATION NEONATAL [None]
  - APNOEA [None]
  - CONVULSION [None]
  - DRUG EXPOSURE DURING PREGNANCY [None]
  - DRUG WITHDRAWAL SYNDROME NEONATAL [None]
  - FEEDING DISORDER NEONATAL [None]
  - HYPOTONIA [None]
  - IRRITABILITY [None]
  - NEONATAL ASPHYXIA [None]
  - NEONATAL DISORDER [None]
  - RESPIRATORY DISORDER NEONATAL [None]
  - TREMOR [None]
  - VOMITING [None]
